FAERS Safety Report 4310124-5 (Version None)
Quarter: 2004Q1

REPORT INFORMATION
  Report Type: 
  Country: None (occurrence: None)
  Receive Date: 20040301
  Receipt Date: 20031124
  Transmission Date: 20041129
  Serious: No
  Sender: FDA-Public Use
  Company Number: WAES 0311USA02715

PATIENT
  Age: 54 Year
  Sex: Male
  Weight: 68.9467 kg

DRUGS (2)
  1. ZETIA [Suspect]
     Indication: LOW DENSITY LIPOPROTEIN
     Dosage: 10 MG/DAILY/PO
     Route: 048
     Dates: start: 20031006
  2. RITALIN [Concomitant]

REACTIONS (3)
  - ABDOMINAL DISCOMFORT [None]
  - EAR DISORDER [None]
  - TINNITUS [None]
